FAERS Safety Report 4277330-X (Version None)
Quarter: 2004Q1

REPORT INFORMATION
  Report Type: 
  Country: None (occurrence: None)
  Receive Date: 20040121
  Receipt Date: 20040121
  Transmission Date: 20041129
  Serious: Yes (Hospitalization)
  Sender: FDA-Public Use
  Company Number: None

PATIENT
  Age: 74 Year
  Sex: Male
  Weight: 81 kg

DRUGS (20)
  1. THEOPHYLLINE [Suspect]
     Indication: CHRONIC OBSTRUCTIVE AIRWAYS DISEASE
     Dosage: 400MG  BID  ORAL
     Route: 048
     Dates: start: 19941202, end: 20040117
  2. ALBUTEROL [Concomitant]
  3. ALLOPURINOL [Concomitant]
  4. ASPIRIN 25MG/DIPYRIDAMOLE [Concomitant]
  5. BENZTROPINE MESYLATE [Concomitant]
  6. CARBIDOPA 50/LEVODOPA [Concomitant]
  7. CLINDAMYCIN HCL [Concomitant]
  8. CLOTRIMAZOLE [Concomitant]
  9. IPRATROPIUM BROMIDE [Concomitant]
  10. ISOSORBIDE DINITRATE [Concomitant]
  11. LISINOPRIL [Concomitant]
  12. POTASSIUM CHLORIDE [Concomitant]
  13. PRAZOSIN HCL [Concomitant]
  14. QUININE SULFATE [Concomitant]
  15. RABEPRAZOLE NA [Concomitant]
  16. SIMVASTATIN [Concomitant]
  17. TERBUTALINE SULFATE [Concomitant]
  18. THEOPHYLLINE [Concomitant]
  19. TOLAZAMIDE [Concomitant]
  20. TRIAMCINOLONE [Concomitant]

REACTIONS (4)
  - DYSPNOEA [None]
  - NAUSEA [None]
  - RESPIRATORY ALKALOSIS [None]
  - VOMITING [None]
